FAERS Safety Report 9505844 (Version 1)
Quarter: 2013Q1

REPORT INFORMATION
  Report Type: Spontaneous
  Country: US (occurrence: None)
  Receive Date: 20130226
  Receipt Date: 20130226
  Transmission Date: 20140127
  Serious: No
  Sender: FDA-Public Use
  Company Number: PHEH2012US009520

PATIENT
  Age: 65 Year
  Sex: Male

DRUGS (6)
  1. TOBI (TOBRAMYCIN) SOL. AEROSOL METERED DOSE INH [Suspect]
     Indication: CYSTIC FIBROSIS
     Route: 055
     Dates: start: 201109
  2. ALLOPURINOL [Concomitant]
  3. ALBUTEROL (SALBUTAMOL) [Concomitant]
  4. PULMOZYME (DORNASE ALFA) [Concomitant]
  5. VITAMINS (ASCORBIC ACID, ERGOCALCIFEROL, NICOTINAMIDE, RETINOL, RIBOFLAVIN, THIAMINE HYDROCHLORIDE) [Concomitant]
  6. FISH OIL (FISH OIL) [Concomitant]

REACTIONS (1)
  - Epistaxis [None]
